FAERS Safety Report 14179188 (Version 5)
Quarter: 2018Q1

REPORT INFORMATION
  Report Type: Spontaneous
  Country: PL (occurrence: PL)
  Receive Date: 20171110
  Receipt Date: 20180215
  Transmission Date: 20180508
  Serious: Yes (Life-Threatening, Hospitalization, Other)
  Sender: FDA-Public Use
  Company Number: PL-JNJFOC-20171108924

PATIENT
  Age: 58 Year
  Sex: Male
  Weight: 114 kg

DRUGS (17)
  1. METOPROLOL. [Concomitant]
     Active Substance: METOPROLOL
     Route: 065
     Dates: start: 201703
  2. AMIODARONE [Concomitant]
     Active Substance: AMIODARONE
     Route: 065
     Dates: start: 20170604
  3. XARELTO [Suspect]
     Active Substance: RIVAROXABAN
     Indication: ATRIAL FIBRILLATION
     Route: 048
     Dates: start: 201703, end: 20170807
  4. FUROSEMIDE. [Concomitant]
     Active Substance: FUROSEMIDE
     Route: 065
     Dates: start: 201703
  5. ATORVASTATIN CALCIUM. [Concomitant]
     Active Substance: ATORVASTATIN CALCIUM
     Route: 065
     Dates: start: 20161127
  6. PYLERA [Concomitant]
     Active Substance: BISMUTH SUBCITRATE POTASSIUM\METRONIDAZOLE\TETRACYCLINE HYDROCHLORIDE
     Route: 065
  7. CARBAMAZEPINE. [Concomitant]
     Active Substance: CARBAMAZEPINE
     Route: 065
     Dates: start: 200305
  8. CHLORTALIDONE [Concomitant]
     Active Substance: CHLORTHALIDONE
     Indication: CARDIAC FAILURE
     Route: 065
  9. RAMIPRIL. [Concomitant]
     Active Substance: RAMIPRIL
     Route: 065
     Dates: start: 201705
  10. TIAGABINE HYDROCHLORIDE. [Concomitant]
     Active Substance: TIAGABINE HYDROCHLORIDE
     Route: 065
     Dates: start: 200812
  11. VERICIGUAT [Suspect]
     Active Substance: VERICIGUAT HYDROCHLORIDE
     Indication: CARDIAC FAILURE
     Route: 048
     Dates: start: 20170607, end: 20170621
  12. VERICIGUAT [Suspect]
     Active Substance: VERICIGUAT HYDROCHLORIDE
     Indication: CARDIAC FAILURE
     Route: 048
     Dates: start: 20170622, end: 20170705
  13. XARELTO [Suspect]
     Active Substance: RIVAROXABAN
     Indication: ATRIAL FIBRILLATION
     Route: 048
     Dates: start: 20170816
  14. VERICIGUAT [Suspect]
     Active Substance: VERICIGUAT HYDROCHLORIDE
     Indication: CARDIAC FAILURE
     Route: 048
     Dates: start: 20170706
  15. ASPIRIN. [Concomitant]
     Active Substance: ASPIRIN
     Indication: CORONARY ARTERY DISEASE
     Route: 065
     Dates: start: 20161127
  16. PANTOPRAZOLE [Concomitant]
     Active Substance: PANTOPRAZOLE
     Route: 065
     Dates: start: 20161127, end: 20170809
  17. POSTERISAN H [Concomitant]
     Indication: PROPHYLAXIS
     Route: 065

REACTIONS (2)
  - Gastric disorder [Recovered/Resolved]
  - Cardiac failure [Recovered/Resolved]

NARRATIVE: CASE EVENT DATE: 20170807
